FAERS Safety Report 20582764 (Version 6)
Quarter: 2022Q2

REPORT INFORMATION
  Report Type: Report from Study
  Country: US (occurrence: US)
  Receive Date: 20220311
  Receipt Date: 20220620
  Transmission Date: 20220720
  Serious: Yes (Other)
  Sender: FDA-Public Use
  Company Number: US-MMM-91DH40JK

PATIENT

DRUGS (1)
  1. BELANTAMAB MAFODOTIN [Suspect]
     Active Substance: BELANTAMAB MAFODOTIN
     Indication: Product used for unknown indication
     Dosage: UNK
     Dates: start: 20220107

REACTIONS (7)
  - Cataract [Unknown]
  - Keratopathy [Unknown]
  - Visual acuity reduced [Unknown]
  - Hypermetropia [Unknown]
  - Blood glucose increased [Unknown]
  - Myopia [Unknown]
  - Eye disorder [Unknown]

NARRATIVE: CASE EVENT DATE: 20220214
